FAERS Safety Report 8318025-2 (Version None)
Quarter: 2012Q2

REPORT INFORMATION
  Report Type: 
  Country: None (occurrence: None)
  Receive Date: 20120427
  Receipt Date: 20120423
  Transmission Date: 20120825
  Serious: Yes (Hospitalization, Other)
  Sender: FDA-Public Use
  Company Number: GB-ROCHE-1057535

PATIENT
  Sex: Female

DRUGS (7)
  1. OMEPRAZOLE [Concomitant]
     Route: 048
     Dates: start: 20101207
  2. FUROSEMIDE [Concomitant]
     Dates: start: 20101102
  3. LUCENTIS [Suspect]
     Route: 050
     Dates: start: 20120304
  4. CEFUROXIME [Concomitant]
     Dates: start: 20100715
  5. DIGOXIN [Concomitant]
     Dates: start: 20100105
  6. LUCENTIS [Suspect]
     Indication: PRODUCT USED FOR UNKNOWN INDICATION
     Dosage: LAST DOSE BEFORE EVENT:04/MAR/2012
     Route: 050
     Dates: end: 20120304
  7. ADCAL - D3 [Concomitant]
     Dates: start: 20100715

REACTIONS (3)
  - ENDOPHTHALMITIS [None]
  - EYE INFECTION [None]
  - MACULAR DEGENERATION [None]
